FAERS Safety Report 5576986-9 (Version None)
Quarter: 2007Q4

REPORT INFORMATION
  Report Type: 
  Country: None (occurrence: None)
  Receive Date: 20071228
  Receipt Date: 20071218
  Transmission Date: 20080405
  Serious: Yes (Other)
  Sender: FDA-Public Use
  Company Number: SE-ALLERGAN-0713964US

PATIENT

DRUGS (2)
  1. DYSPORT [Suspect]
     Indication: NEUROGENIC BLADDER
     Dosage: 500 UNITS, SINGLE
     Route: 030
  2. BOTOX [Suspect]
     Indication: NEUROGENIC BLADDER
     Dosage: UNK, SINGLE
     Route: 030

REACTIONS (1)
  - MUSCULAR WEAKNESS [None]
